FAERS Safety Report 17438811 (Version 9)
Quarter: 2020Q4

REPORT INFORMATION
  Report Type: Report from Study
  Country: US (occurrence: US)
  Receive Date: 20200220
  Receipt Date: 20201202
  Transmission Date: 20210113
  Serious: Yes (Life-Threatening, Hospitalization, Other)
  Sender: FDA-Public Use
  Company Number: NVSC2020US037963

PATIENT
  Age: 1 Year
  Sex: Female
  Weight: 14.6 kg

DRUGS (77)
  1. GSK1120212 [Suspect]
     Active Substance: TRAMETINIB
     Indication: NEUROFIBROMATOSIS
     Dosage: 0.3 MG, QD
     Route: 048
     Dates: start: 20171130, end: 20180423
  2. GSK1120212 [Suspect]
     Active Substance: TRAMETINIB
     Dosage: 0.3 MG, QD (6 ML LIQUID)
     Route: 048
     Dates: start: 20180427
  3. GSK1120212 [Suspect]
     Active Substance: TRAMETINIB
     Dosage: 0.05 MG/ML, QD (GIVE 6ML DAILY)
     Route: 048
  4. ACETAMINOPHEN. [Concomitant]
     Active Substance: ACETAMINOPHEN
     Indication: PRODUCT USED FOR UNKNOWN INDICATION
     Dosage: 15 MG/KG, Q6H (PRN)
     Route: 048
  5. IBUPROFEN. [Concomitant]
     Active Substance: IBUPROFEN
     Indication: PAIN
     Dosage: 10 MG/KG, Q6H (120 MG)
     Route: 048
  6. NACL [Concomitant]
     Active Substance: SODIUM CHLORIDE
     Dosage: 0.5 ML, PRN
     Route: 042
  7. WHITE PETROLATUM [Concomitant]
     Active Substance: PETROLATUM
     Indication: PRODUCT USED FOR UNKNOWN INDICATION
     Dosage: UNK, TID
     Route: 061
  8. KLONOPIN [Concomitant]
     Active Substance: CLONAZEPAM
     Indication: PRODUCT USED FOR UNKNOWN INDICATION
     Route: 065
  9. MELATONIN [Concomitant]
     Active Substance: MELATONIN
     Indication: PRODUCT USED FOR UNKNOWN INDICATION
     Dosage: 2 MG, PRN (G-TUB)
     Route: 048
  10. GLYCOLAX [Concomitant]
     Active Substance: POLYETHYLENE GLYCOL 3350
     Indication: PRODUCT USED FOR UNKNOWN INDICATION
     Dosage: GIVE 2 CAPFULS PER G-TUBE EVERY
     Route: 048
  11. TOBRAMYCIN. [Concomitant]
     Active Substance: TOBRAMYCIN
     Indication: PRODUCT USED FOR UNKNOWN INDICATION
     Dosage: 80 MG, TID (RT) FOR 5 DAYS
     Route: 055
  12. NEURONTIN [Concomitant]
     Active Substance: GABAPENTIN
     Indication: PRODUCT USED FOR UNKNOWN INDICATION
     Dosage: 70 MG, Q8H
     Route: 048
  13. FAMOTIDINE. [Concomitant]
     Active Substance: FAMOTIDINE
     Indication: PRODUCT USED FOR UNKNOWN INDICATION
     Dosage: 6.4 MG, Q12H
     Route: 065
  14. IBUPROFEN. [Concomitant]
     Active Substance: IBUPROFEN
     Dosage: 7 ML (140 MG TOTAL) Q6H AS NEEDED
     Route: 048
  15. NACL [Concomitant]
     Active Substance: SODIUM CHLORIDE
     Dosage: 250 ML, PRN
     Route: 042
  16. GLYCERIN. [Concomitant]
     Active Substance: GLYCERIN
     Indication: PRODUCT USED FOR UNKNOWN INDICATION
     Dosage: 2.7 ML, QD
     Route: 054
  17. PEPCID [Concomitant]
     Active Substance: FAMOTIDINE
     Indication: PRODUCT USED FOR UNKNOWN INDICATION
     Dosage: 0.8 ML (6.4 MG TOTAL), BID
     Route: 048
  18. LEVETIRACETAM. [Concomitant]
     Active Substance: LEVETIRACETAM
     Indication: PRODUCT USED FOR UNKNOWN INDICATION
     Dosage: 250 MG, BID
     Route: 065
  19. LEVETIRACETAM. [Concomitant]
     Active Substance: LEVETIRACETAM
     Dosage: 17 MG/KG, BID
     Route: 065
  20. ALBUTEROL. [Concomitant]
     Active Substance: ALBUTEROL
     Indication: PRODUCT USED FOR UNKNOWN INDICATION
     Dosage: 3 ML (2.5 MG TOTAL), TID BY NEBULIZATION
     Route: 055
  21. FAMOTIDINE. [Concomitant]
     Active Substance: FAMOTIDINE
     Dosage: 7.2 MG, Q12H
     Route: 065
  22. WESTCORT [Concomitant]
     Active Substance: HYDROCORTISONE VALERATE
     Indication: PRODUCT USED FOR UNKNOWN INDICATION
     Dosage: BID (APPLY TO FACE AS NEEDED)
     Route: 061
  23. MUPIROCIN. [Concomitant]
     Active Substance: MUPIROCIN
     Indication: PRODUCT USED FOR UNKNOWN INDICATION
     Dosage: UNK, TID (PRN)
     Route: 061
  24. NACL [Concomitant]
     Active Substance: SODIUM CHLORIDE
     Dosage: 4 ML, Q6H PRN TID (3 %)
     Route: 055
  25. NACL [Concomitant]
     Active Substance: SODIUM CHLORIDE
     Dosage: 3 ML, BID
     Route: 055
  26. KEPPRA [Concomitant]
     Active Substance: LEVETIRACETAM
     Indication: PRODUCT USED FOR UNKNOWN INDICATION
     Dosage: 250 MG, Q12H
     Route: 065
  27. MEPILEX AG [Concomitant]
     Active Substance: ACTIVATED CHARCOAL\SILVER SULFATE
     Dosage: APPLY WITH DRESSING CHANGES, PRN (6X6 BANDAGE)
     Route: 065
  28. MELATONIN [Concomitant]
     Active Substance: MELATONIN
     Dosage: 6 ML (6 MG TOTAL) AT BEDTIME PRN (SLEEP)
     Route: 048
  29. GABAPENTIN. [Concomitant]
     Active Substance: GABAPENTIN
     Indication: PRODUCT USED FOR UNKNOWN INDICATION
     Dosage: 70 MG, Q8H
     Route: 048
  30. SODIUM CHLORIDE. [Concomitant]
     Active Substance: SODIUM CHLORIDE
     Indication: COUGH
     Dosage: 4 ML, QID AS NEEDED
     Route: 065
  31. GAS RELIEF [Concomitant]
     Active Substance: DIMETHICONE
     Indication: FLATULENCE
     Dosage: 0.6 ML PER GTUBE, QID AS NEEDED
     Route: 048
  32. GSK1120212 [Suspect]
     Active Substance: TRAMETINIB
     Dosage: 0.3 MG, QD
     Route: 048
     Dates: start: 20200212
  33. AMOXIL [Concomitant]
     Active Substance: AMOXICILLIN
     Indication: PRODUCT USED FOR UNKNOWN INDICATION
     Dosage: 3.5 ML (280 MG TOTAL), Q12H (FOR 7 DAYS)
     Route: 048
  34. LIVEROIL [Concomitant]
     Active Substance: COD LIVER OIL
     Indication: PRODUCT USED FOR UNKNOWN INDICATION
     Dosage: UNK, PRN
     Route: 061
  35. NACL [Concomitant]
     Active Substance: SODIUM CHLORIDE
     Dosage: 50 ML, PRN
     Route: 042
  36. GLYCERIN. [Concomitant]
     Active Substance: GLYCERIN
     Dosage: 0.5 SUPPOSITI INTO THE RECTUM DAILY, QD AS NEEDED
     Route: 054
  37. MENTHOL;ZINC [Concomitant]
     Indication: PRODUCT USED FOR UNKNOWN INDICATION
     Dosage: 1 DF, BID (PRN)
     Route: 061
  38. KENALOG [Concomitant]
     Active Substance: TRIAMCINOLONE ACETONIDE
     Dosage: 60 G, BID (APPLY TO SKIN FOR UPTO 2 WEEK PRN)
     Route: 061
  39. POLYETHYLENE GLYCOL [Concomitant]
     Active Substance: POLYETHYLENE GLYCOLS
     Indication: PRODUCT USED FOR UNKNOWN INDICATION
     Dosage: 17 G, QD
     Route: 048
  40. DIPHENHYDRAMINE. [Concomitant]
     Active Substance: DIPHENHYDRAMINE
     Indication: HYPERSENSITIVITY
     Dosage: 5 ML (12.5 MG TOTAL), Q6H AS NEEDED
     Route: 048
  41. TRAMETINIB DIMETHYL SULFOXIDE [Concomitant]
     Active Substance: TRAMETINIB DIMETHYL SULFOXIDE
     Dosage: 9 ML (0.05 MG/ML), QD PER TUBE
     Route: 048
  42. GSK1120212 [Suspect]
     Active Substance: TRAMETINIB
     Dosage: 0.45 MG
     Route: 048
     Dates: start: 20171130, end: 20201023
  43. NACL [Concomitant]
     Active Substance: SODIUM CHLORIDE
     Indication: PRODUCT USED FOR UNKNOWN INDICATION
     Dosage: 250 ML, PRN
     Route: 042
  44. NYSTATIN. [Concomitant]
     Active Substance: NYSTATIN
     Indication: PRODUCT USED FOR UNKNOWN INDICATION
     Dosage: UNK, BID (PRN)
     Route: 061
  45. SULFAMETHOXAZOLE AND TRIMETHOPRIM [Concomitant]
     Active Substance: SULFAMETHOXAZOLE\TRIMETHOPRIM
     Indication: PRODUCT USED FOR UNKNOWN INDICATION
     Dosage: 2.5 MG/KG, QD AT 18:00 (Q24H)
  46. PEDIALYTE [Concomitant]
     Active Substance: POTASSIUM CITRATE\SODIUM CITRATE\ZINC
     Indication: PROPHYLAXIS
     Dosage: UNK
     Route: 065
  47. TYLENOL [Concomitant]
     Active Substance: ACETAMINOPHEN
     Indication: PAIN
     Dosage: 6.6 ML (211.5 MG TOTAL), Q6H AS NEEDED
     Route: 048
  48. CETIRIZINE [Concomitant]
     Active Substance: CETIRIZINE HYDROCHLORIDE
     Indication: PRODUCT USED FOR UNKNOWN INDICATION
     Dosage: 2.5 MG, QD
     Route: 065
  49. FLONASE [Concomitant]
     Active Substance: FLUTICASONE PROPIONATE
     Indication: PRODUCT USED FOR UNKNOWN INDICATION
     Dosage: 1 DF, QD (EACH NOSTRIL)
     Route: 061
  50. LACTOBACILLUS RHAMNOSUS [Concomitant]
     Active Substance: LACTOBACILLUS RHAMNOSUS
     Indication: PRODUCT USED FOR UNKNOWN INDICATION
     Dosage: 1 DF (5 BILLION CELLS TOTAL), QD (POWDER IN PACKET)
     Route: 048
  51. ZINC OXIDE. [Concomitant]
     Active Substance: ZINC OXIDE
     Indication: PRODUCT USED FOR UNKNOWN INDICATION
     Dosage: UNK, PRN
     Route: 061
  52. KEPPRA [Concomitant]
     Active Substance: LEVETIRACETAM
     Dosage: 2.5 ML, Q12H
     Route: 048
  53. AQUAPHOR HEALING [Concomitant]
     Active Substance: PETROLATUM
     Indication: PRODUCT USED FOR UNKNOWN INDICATION
     Dosage: 42 %
     Route: 065
  54. DESITIN [Concomitant]
     Active Substance: ZINC OXIDE
     Indication: PRODUCT USED FOR UNKNOWN INDICATION
     Dosage: UNK, PRN (PERI-AREA AND BUTTOCKS)
     Route: 061
  55. MELATONIN [Concomitant]
     Active Substance: MELATONIN
     Dosage: 3 MG, QN
     Route: 048
  56. BACTROBAN [Concomitant]
     Active Substance: MUPIROCIN\MUPIROCIN CALCIUM
     Indication: PRODUCT USED FOR UNKNOWN INDICATION
     Dosage: APPLY TO THE AFFECTED AREA
     Route: 065
  57. SIMETHICONE (DIMETHICONE) [Concomitant]
     Active Substance: DIMETHICONE
     Indication: PRODUCT USED FOR UNKNOWN INDICATION
     Dosage: 40 MG, PRN (4-TIMES DAILY)
     Route: 065
  58. DIPHENHYDRAMINE. [Concomitant]
     Active Substance: DIPHENHYDRAMINE
     Indication: PRURITUS
     Dosage: 1.25 MG/KG, Q8H (PRN)
     Route: 048
  59. MYCOSTATIN [Concomitant]
     Active Substance: NYSTATIN
     Indication: ERYTHEMA
     Dosage: UNK, BID AS NEEDED (APPLY TO AFFECTED AREAS/ SKIN FOLDS PRN) (POWDER)
     Route: 061
  60. CALMOSEPTINE [Concomitant]
     Active Substance: MENTHOL\ZINC OXIDE
     Indication: ERYTHEMA
     Dosage: 1 APPLICATION, BID AS NEEDED
     Route: 061
  61. IBUPROFEN. [Concomitant]
     Active Substance: IBUPROFEN
     Indication: PYREXIA
     Dosage: 120 MG, Q6H (PRN)
     Route: 065
  62. NACL [Concomitant]
     Active Substance: SODIUM CHLORIDE
     Dosage: 50 ML, PRN
     Route: 042
  63. NACL [Concomitant]
     Active Substance: SODIUM CHLORIDE
     Dosage: 2 ML, PRN
     Route: 042
  64. CLOTRIMAZOL [Concomitant]
     Active Substance: CLOTRIMAZOLE
     Indication: PRODUCT USED FOR UNKNOWN INDICATION
     Dosage: UNK, BID
     Route: 061
  65. MEPILEX AG [Concomitant]
     Active Substance: ACTIVATED CHARCOAL\SILVER SULFATE
     Indication: PRODUCT USED FOR UNKNOWN INDICATION
     Dosage: UNK (SILVER SULFATE-FOAM BANDAGE 6 X 6)
     Route: 065
  66. BACTROBAN [Concomitant]
     Active Substance: MUPIROCIN\MUPIROCIN CALCIUM
     Dosage: UNK, TID (FOR 10 DAYS)
     Route: 061
  67. GLYCOLAX [Concomitant]
     Active Substance: POLYETHYLENE GLYCOL 3350
     Dosage: 17 G, QD
     Route: 048
  68. GABAPENTIN. [Concomitant]
     Active Substance: GABAPENTIN
     Dosage: 5 MG/KG, Q8H
     Route: 065
  69. SULFATRIM [Concomitant]
     Active Substance: SULFAMETHOXAZOLE\TRIMETHOPRIM
     Indication: PRODUCT USED FOR UNKNOWN INDICATION
     Dosage: 3.4 ML PER G TUBE, QD
     Route: 048
  70. ZYRTEC [Concomitant]
     Active Substance: CETIRIZINE HYDROCHLORIDE
     Indication: PRODUCT USED FOR UNKNOWN INDICATION
     Dosage: 2.5 ML, QD
     Route: 048
  71. GSK1120212 [Suspect]
     Active Substance: TRAMETINIB
     Dosage: 0.45 MG, QD
     Route: 048
     Dates: start: 20171130, end: 20201106
  72. SULFAMETHOXAZOLE AND TRIMETHOPRIM [Concomitant]
     Active Substance: SULFAMETHOXAZOLE\TRIMETHOPRIM
     Dosage: 27 MG, QD AT 18:00
     Route: 065
  73. WHITE PETROLATUM [Concomitant]
     Active Substance: PETROLATUM
     Dosage: UNK, QD (PRN)
     Route: 065
  74. MELATONIN [Concomitant]
     Active Substance: MELATONIN
     Dosage: 6 MG, PRN (NIGHTY)
     Route: 065
  75. KENALOG [Concomitant]
     Active Substance: TRIAMCINOLONE ACETONIDE
     Indication: SEBORRHOEIC DERMATITIS
     Dosage: UNK, BID (APPLY TO AFFECTED AREA TWICE DAILY FOR 10)
     Route: 065
  76. TRAMETINIB DIMETHYL SULFOXIDE [Concomitant]
     Active Substance: TRAMETINIB DIMETHYL SULFOXIDE
     Indication: PRODUCT USED FOR UNKNOWN INDICATION
     Dosage: 0.45 MG, QD
     Route: 048
  77. TYLENOL [Concomitant]
     Active Substance: ACETAMINOPHEN
     Indication: PYREXIA
     Dosage: 192 MG, PRN (EVERY 6 HRS)
     Route: 048

REACTIONS (57)
  - Pyrexia [Not Recovered/Not Resolved]
  - Sepsis [Unknown]
  - Nasal congestion [Recovered/Resolved]
  - Oxygen consumption increased [Recovering/Resolving]
  - Pyrexia [Recovered/Resolved]
  - Constipation [Recovered/Resolved]
  - Rhinorrhoea [Unknown]
  - Blood creatinine increased [Unknown]
  - Urinary tract infection [Recovered/Resolved]
  - Respiratory failure [Recovering/Resolving]
  - Hypoxia [Recovering/Resolving]
  - Tachycardia [Not Recovered/Not Resolved]
  - Bacterial tracheitis [Recovered/Resolved]
  - Hyperkalaemia [Unknown]
  - Bronchiolitis [Unknown]
  - Seizure [Recovering/Resolving]
  - Device related infection [Recovered/Resolved]
  - Hypoacusis [Recovering/Resolving]
  - Pyrexia [Recovered/Resolved]
  - Asthenia [Unknown]
  - Upper respiratory tract infection [Recovered/Resolved]
  - Pyrexia [Recovered/Resolved]
  - Pyrexia [Recovered/Resolved]
  - Pyrexia [Recovered/Resolved]
  - Respiratory syncytial virus test positive [Unknown]
  - Enterococcus test positive [Unknown]
  - Secretion discharge [Unknown]
  - Tremor [Unknown]
  - Capillary fragility decreased [Unknown]
  - Mean cell haemoglobin increased [Unknown]
  - Hyponatraemia [Unknown]
  - Anaemia [Recovered/Resolved]
  - Dyspnoea [Unknown]
  - Pseudomonal bacteraemia [Unknown]
  - Gastrooesophageal reflux disease [Recovering/Resolving]
  - Cough [Unknown]
  - Pyrexia [Recovered/Resolved]
  - Rhinovirus infection [Recovering/Resolving]
  - Bronchitis [Unknown]
  - Otitis media [Recovering/Resolving]
  - Diarrhoea [Recovered/Resolved]
  - Paronychia [Unknown]
  - Tracheal inflammation [Unknown]
  - Chills [Unknown]
  - Urinary tract infection [Recovering/Resolving]
  - Enterovirus infection [Recovering/Resolving]
  - White blood cell count increased [Unknown]
  - Pyrexia [Recovered/Resolved]
  - Tracheal oedema [Unknown]
  - Atelectasis [Unknown]
  - Cystitis [Recovered/Resolved]
  - Retching [Unknown]
  - Laryngeal pain [Recovered/Resolved]
  - Pyrexia [Recovered/Resolved]
  - Mean cell volume increased [Unknown]
  - Nail infection [Recovered/Resolved]
  - Pyrexia [Recovered/Resolved]

NARRATIVE: CASE EVENT DATE: 20180425
